FAERS Safety Report 18393502 (Version 1)
Quarter: 2020Q4

REPORT INFORMATION
  Report Type: Spontaneous
  Country: US (occurrence: US)
  Receive Date: 20201016
  Receipt Date: 20201016
  Transmission Date: 20210114
  Serious: Yes (Hospitalization)
  Sender: FDA-Public Use
  Company Number: US-VERTEX PHARMACEUTICALS-2020-020243

PATIENT
  Sex: Female

DRUGS (1)
  1. TRIKAFTA [Suspect]
     Active Substance: ELEXACAFTOR\IVACAFTOR\TEZACAFTOR
     Indication: CYSTIC FIBROSIS
     Dosage: 2 ORANGE TABS(100MG ELEXACAFTOR/50MG TEZACAFTOR/75MG IVACAFTOR)AM;1BLUE TAB(150MG IVACAFTOR)PM
     Route: 048
     Dates: start: 202001

REACTIONS (1)
  - Gastritis [Unknown]

NARRATIVE: CASE EVENT DATE: 2020
